FAERS Safety Report 6372304-7 (Version None)
Quarter: 2009Q3

REPORT INFORMATION
  Report Type: 
  Country: None (occurrence: None)
  Receive Date: 20090924
  Receipt Date: 20090917
  Transmission Date: 20100115
  Serious: Yes (Death, Other)
  Sender: FDA-Public Use
  Company Number: US-CELGENEUS-163-21880-09041051

PATIENT
  Sex: Male

DRUGS (3)
  1. REVLIMID [Suspect]
     Route: 048
     Dates: start: 20090301
  2. REVLIMID [Suspect]
     Route: 048
     Dates: start: 20090201, end: 20090301
  3. VIDAZA [Suspect]
     Dates: start: 20090601, end: 20090603

REACTIONS (3)
  - BLOOD COUNT ABNORMAL [None]
  - MULTI-ORGAN FAILURE [None]
  - SEPTIC SHOCK [None]
